FAERS Safety Report 11933861 (Version 1)
Quarter: 2016Q1

REPORT INFORMATION
  Report Type: Spontaneous
  Country: DE (occurrence: DE)
  Receive Date: 20160121
  Receipt Date: 20160121
  Transmission Date: 20160526
  Serious: Yes (Hospitalization, Other)
  Sender: FDA-Public Use
  Company Number: DE-WATSON-2016-00891

PATIENT
  Age: 68 Year
  Sex: Female
  Weight: 84 kg

DRUGS (2)
  1. CIPROFLOXACIN HYDROCHLORIDE (UNKNOWN) [Suspect]
     Active Substance: CIPROFLOXACIN HYDROCHLORIDE
     Indication: INFLUENZA LIKE ILLNESS
     Dosage: 1000 MG, DAILY
     Route: 065
     Dates: start: 201509
  2. METFORMIN [Concomitant]
     Active Substance: METFORMIN HYDROCHLORIDE
     Indication: TYPE 2 DIABETES MELLITUS
     Dosage: 800 MG, DAILY
     Route: 065

REACTIONS (10)
  - Blood glucose increased [Unknown]
  - Abdominal discomfort [Unknown]
  - Hyperglycaemia [Unknown]
  - Oedematous pancreatitis [Unknown]
  - Asthenia [Unknown]
  - Myalgia [Unknown]
  - Nausea [Unknown]
  - Pancreatic enzymes increased [Unknown]
  - Malaise [Unknown]
  - Weight decreased [Unknown]

NARRATIVE: CASE EVENT DATE: 201509
